FAERS Safety Report 23934342 (Version 1)
Quarter: 2024Q2

REPORT INFORMATION
  Report Type: Spontaneous
  Country: US (occurrence: US)
  Receive Date: 20240603
  Receipt Date: 20240603
  Transmission Date: 20240716
  Serious: Yes (Other)
  Sender: FDA-Public Use
  Company Number: US-PAIPHARMA-2024-US-030810

PATIENT
  Age: 67 Year
  Sex: Female

DRUGS (20)
  1. VANCOMYCIN [Suspect]
     Active Substance: VANCOMYCIN
     Indication: Product used for unknown indication
  2. MANNITOL [Concomitant]
     Active Substance: MANNITOL
  3. MIDAZOLAM [Concomitant]
     Active Substance: MIDAZOLAM
  4. NOREPINEPHRINE [Concomitant]
     Active Substance: NOREPINEPHRINE\NOREPINEPHRINE BITARTRATE
  5. PHENYLEPHRINE [Concomitant]
     Active Substance: PHENYLEPHRINE HYDROCHLORIDE
  6. PROPOFOL [Concomitant]
     Active Substance: PROPOFOL
  7. PROTAMINE SULFATE [Concomitant]
     Active Substance: PROTAMINE SULFATE
  8. ROCURONIUM [Concomitant]
     Active Substance: ROCURONIUM BROMIDE
  9. SUGAMMADEX SODIUM [Concomitant]
     Active Substance: SUGAMMADEX SODIUM
  10. ASPIRIN [Concomitant]
     Active Substance: ASPIRIN
  11. SIMVASTATIN [Concomitant]
     Active Substance: SIMVASTATIN
  12. CEFUROXIME [Concomitant]
     Active Substance: CEFUROXIME
  13. CALCIUM\VITAMIN D [Concomitant]
     Active Substance: CALCIUM\VITAMIN D
  14. BUPIVACAINE [Concomitant]
     Active Substance: BUPIVACAINE
  15. EPHEDRINE [Concomitant]
     Active Substance: EPHEDRINE
  16. FAMOTIDINE [Concomitant]
     Active Substance: FAMOTIDINE
  17. FENTANYL [Concomitant]
     Active Substance: FENTANYL\FENTANYL CITRATE
  18. HALOPERIDOL [Concomitant]
     Active Substance: HALOPERIDOL
  19. HEPARIN [Concomitant]
     Active Substance: HEPARIN SODIUM
  20. HYDROMORPHONE [Concomitant]
     Active Substance: HYDROMORPHONE

REACTIONS (1)
  - Fanconi syndrome [Unknown]
